FAERS Safety Report 6259730-1 (Version None)
Quarter: 2009Q3

REPORT INFORMATION
  Report Type: 
  Country: None (occurrence: None)
  Receive Date: 20090708
  Receipt Date: 20090626
  Transmission Date: 20100115
  Serious: Yes (Other)
  Sender: FDA-Public Use
  Company Number: CN-PFIZER INC-2009223161

PATIENT
  Age: 70 Year

DRUGS (4)
  1. ZYVOX [Suspect]
     Indication: LUNG INFECTION
     Dosage: 600 MG, 2X/DAY
     Route: 042
     Dates: start: 20090524
  2. AVELOX [Concomitant]
     Dosage: UNK
     Dates: start: 20090524, end: 20090604
  3. ITRACONAZOLE [Concomitant]
     Dosage: UNK
     Dates: start: 20090524, end: 20090604
  4. MEROPENEM [Concomitant]
     Dates: start: 20090518, end: 20090523

REACTIONS (1)
  - BLOOD GLUCOSE INCREASED [None]
